FAERS Safety Report 4544093-X (Version None)
Quarter: 2005Q1

REPORT INFORMATION
  Report Type: 
  Country: None (occurrence: None)
  Receive Date: 20050103
  Receipt Date: 20030619
  Transmission Date: 20050727
  Serious: Yes (Hospitalization)
  Sender: FDA-Public Use
  Company Number: GXKR2003NL00482

PATIENT
  Sex: Male

DRUGS (3)
  1. TRIMETHOPRIM [Suspect]
     Indication: CYSTITIS
     Dosage: NORMAL DOSE, ORAL
     Route: 048
  2. CEDOCARD-RETARD (ISOSORBIDE DINITRATE) TABLET [Concomitant]
  3. PROSCAR (FINASTERIDE) TABLET [Concomitant]

REACTIONS (2)
  - PYREXIA [None]
  - RASH [None]
